FAERS Safety Report 7733075-2 (Version None)
Quarter: 2011Q3

REPORT INFORMATION
  Report Type: 
  Country: None (occurrence: None)
  Receive Date: 20110907
  Receipt Date: 20110825
  Transmission Date: 20111222
  Serious: Yes (Hospitalization)
  Sender: FDA-Public Use
  Company Number: FR-MERCK-1108USA03436

PATIENT
  Age: 78 Year
  Sex: Male

DRUGS (4)
  1. ALDACTONE [Suspect]
     Indication: CIRRHOSIS ALCOHOLIC
     Route: 048
     Dates: start: 20040101, end: 20110608
  2. NOROXIN [Suspect]
     Indication: PROPHYLAXIS
     Route: 048
     Dates: start: 20101201, end: 20110608
  3. NOROXIN [Suspect]
     Route: 065
     Dates: start: 20110621
  4. IKOREL [Suspect]
     Indication: MYOCARDIAL ISCHAEMIA
     Dosage: 40 MG DAILY IN 2 INTAKES
     Route: 048
     Dates: start: 20100101, end: 20100608

REACTIONS (1)
  - HYPONATRAEMIA [None]
